FAERS Safety Report 24762895 (Version 1)
Quarter: 2024Q4

REPORT INFORMATION
  Report Type: Spontaneous
  Country: US (occurrence: US)
  Receive Date: 20241222
  Receipt Date: 20241222
  Transmission Date: 20250114
  Serious: No
  Sender: ABBVIE
  Company Number: US-ABBVIE-6058416

PATIENT
  Age: 57 Year
  Sex: Female

DRUGS (2)
  1. LASTACAFT [Suspect]
     Active Substance: ALCAFTADINE
     Indication: Seasonal allergy
     Dosage: TIME INTERVAL: AS NECESSARY: DAILY DROPS AS NEEDED
     Route: 047
     Dates: start: 2024, end: 2024
  2. LASTACAFT [Suspect]
     Active Substance: ALCAFTADINE
     Indication: Seasonal allergy
     Dosage: TIME INTERVAL: AS NECESSARY: DAILY DROPS AS NEEDED
     Route: 047
     Dates: start: 2024, end: 2024

REACTIONS (2)
  - Blepharospasm [Recovered/Resolved]
  - Blepharospasm [Recovered/Resolved]

NARRATIVE: CASE EVENT DATE: 20240101
